FAERS Safety Report 10462858 (Version 4)
Quarter: 2014Q4

REPORT INFORMATION
  Report Type: Report from Study
  Country: US (occurrence: US)
  Receive Date: 20140918
  Receipt Date: 20141031
  Transmission Date: 20150528
  Serious: Yes (Hospitalization)
  Sender: FDA-Public Use
  Company Number: US-EXELIXIS-CABO-14004171

PATIENT
  Age: 26 Year
  Sex: Male
  Weight: 58.96 kg

DRUGS (6)
  1. CABOZANTINIB [Suspect]
     Active Substance: CABOZANTINIB
     Dosage: 100 MG, QD
     Route: 048
     Dates: start: 20140718, end: 20140727
  2. CABOZANTINIB [Suspect]
     Active Substance: CABOZANTINIB
     Dosage: 100 MG, QD
     Route: 048
     Dates: end: 20141029
  3. PRILOSEC [Concomitant]
     Active Substance: OMEPRAZOLE MAGNESIUM
  4. COREG [Concomitant]
     Active Substance: CARVEDILOL
  5. CABOZANTINIB [Suspect]
     Active Substance: CABOZANTINIB
     Indication: SOFT TISSUE SARCOMA
     Dosage: 140 MG, QD
     Route: 048
     Dates: start: 20140308, end: 20140701
  6. MORPHINE [Concomitant]
     Active Substance: MORPHINE

REACTIONS (11)
  - Diarrhoea [Unknown]
  - Perirectal abscess [Unknown]
  - Abdominal discomfort [Unknown]
  - Skin sensitisation [Unknown]
  - Abdominal pain upper [Unknown]
  - Vomiting [Unknown]
  - Palmar-plantar erythrodysaesthesia syndrome [Unknown]
  - Insomnia [Unknown]
  - Dry skin [Unknown]
  - Rash [Unknown]
  - Off label use [Unknown]

NARRATIVE: CASE EVENT DATE: 20140727
